FAERS Safety Report 23781820 (Version 1)
Quarter: 2024Q2

REPORT INFORMATION
  Report Type: Spontaneous
  Country: US (occurrence: US)
  Receive Date: 20240425
  Receipt Date: 20240425
  Transmission Date: 20240716
  Serious: No
  Sender: FDA-Public Use
  Company Number: US-CIPLA LTD.-2023US03324

PATIENT

DRUGS (3)
  1. ALBUTEROL [Suspect]
     Active Substance: ALBUTEROL
     Indication: Asthma
     Dosage: UNK, FREQUENCY AS NEEDED
     Route: 065
     Dates: start: 2013
  2. ALBUTEROL [Suspect]
     Active Substance: ALBUTEROL
     Dosage: UNK, FREQUENCY AS NEEDED
     Route: 065
     Dates: start: 2023
  3. ATIVAN [Concomitant]
     Active Substance: LORAZEPAM
     Indication: Anxiety
     Dosage: UNK, ONE TABLET EVERY MONTH AS NEEDED
     Route: 065
     Dates: start: 2020

REACTIONS (3)
  - Incorrect dose administered by device [Unknown]
  - Device maintenance issue [Unknown]
  - Device delivery system issue [Unknown]

NARRATIVE: CASE EVENT DATE: 20230101
